FAERS Safety Report 8019576-0 (Version None)
Quarter: 2012Q1

REPORT INFORMATION
  Report Type: 
  Country: None (occurrence: None)
  Receive Date: 20120103
  Receipt Date: 20111221
  Transmission Date: 20120608
  Serious: Yes (Hospitalization)
  Sender: FDA-Public Use
  Company Number: JP-MERCK-1112USA03281

PATIENT
  Age: 60 Year
  Sex: Female

DRUGS (4)
  1. PREDNISOLONE [Concomitant]
     Dosage: DAILY DOSAGE UNKNOWN
     Route: 065
  2. CRESTOR [Concomitant]
     Route: 048
  3. ACTONEL [Concomitant]
     Dosage: DAILY DOSAGE UNKNOWN
     Route: 048
  4. JANUVIA [Suspect]
     Indication: DIABETES MELLITUS
     Route: 048
     Dates: start: 20110101, end: 20111201

REACTIONS (2)
  - PYREXIA [None]
  - RASH [None]
